FAERS Safety Report 6391624-3 (Version None)
Quarter: 2009Q4

REPORT INFORMATION
  Report Type: 
  Country: None (occurrence: None)
  Receive Date: 20091007
  Receipt Date: 20090818
  Transmission Date: 20100525
  Serious: No
  Sender: FDA-Public Use
  Company Number: A0797636A

PATIENT
  Age: 69 Year
  Sex: Female

DRUGS (12)
  1. ADVAIR DISKUS 100/50 [Suspect]
     Indication: CHRONIC OBSTRUCTIVE PULMONARY DISEASE
     Dosage: 2PUFF TWICE PER DAY
     Route: 055
     Dates: start: 20090611
  2. FLONASE [Concomitant]
  3. ASTELIN [Concomitant]
  4. MIACALCIN [Concomitant]
  5. NORVASC [Concomitant]
  6. XANAX [Concomitant]
  7. PREVACID [Concomitant]
  8. ENALAPRIL MALEATE [Concomitant]
  9. SINGULAIR [Concomitant]
  10. SYNTHROID [Concomitant]
  11. OXYGEN [Concomitant]
  12. UNSPECIFIED INHALER [Concomitant]

REACTIONS (2)
  - DYSPNOEA [None]
  - PRODUCT QUALITY ISSUE [None]
